FAERS Safety Report 13527535 (Version 1)
Quarter: 2017Q2

REPORT INFORMATION
  Report Type: Spontaneous
  Country: RU (occurrence: RU)
  Receive Date: 20170509
  Receipt Date: 20170509
  Transmission Date: 20170830
  Serious: Yes (Hospitalization)
  Sender: FDA-Public Use
  Company Number: RU-GLAXOSMITHKLINE-RU2017GSK064668

PATIENT
  Age: 61 Year
  Sex: Male

DRUGS (1)
  1. ANORO ELLIPTA [Suspect]
     Active Substance: UMECLIDINIUM BROMIDE\VILANTEROL TRIFENATATE
     Indication: CHRONIC OBSTRUCTIVE PULMONARY DISEASE

REACTIONS (4)
  - Productive cough [Unknown]
  - Chronic obstructive pulmonary disease [Recovering/Resolving]
  - Viral infection [Unknown]
  - Blood pressure increased [Unknown]
